FAERS Safety Report 25655161 (Version 2)
Quarter: 2025Q4

REPORT INFORMATION
  Report Type: Spontaneous
  Country: CA (occurrence: CA)
  Receive Date: 20250807
  Receipt Date: 20251002
  Transmission Date: 20260118
  Serious: Yes (Other)
  Sender: PFIZER
  Company Number: CA-PFIZER INC-202500158033

PATIENT
  Age: 41 Year
  Sex: Male

DRUGS (2)
  1. ABRILADA [Suspect]
     Active Substance: ADALIMUMAB-AFZB
     Indication: Crohn^s disease
     Dosage: 160 MG WEEK 0, 80 MG WEEK 2 THEN 40 MG Q 2 WEEKS
     Route: 058
     Dates: start: 20221223
  2. PREDNISONE [Concomitant]
     Active Substance: PREDNISONE
     Dosage: UNK

REACTIONS (1)
  - Rib fracture [Unknown]

NARRATIVE: CASE EVENT DATE: 20250101
